FAERS Safety Report 4968867-6 (Version None)
Quarter: 2006Q2

REPORT INFORMATION
  Report Type: 
  Country: None (occurrence: None)
  Receive Date: 20060411
  Receipt Date: 20060330
  Transmission Date: 20061013
  Serious: Yes (Hospitalization)
  Sender: FDA-Public Use
  Company Number: PHRM2006FR01202

PATIENT
  Age: 7 Year
  Sex: Female
  Weight: 25 kg

DRUGS (2)
  1. CORTANCYL [Concomitant]
     Indication: NEPHROTIC SYNDROME
     Dosage: 25 MG, QD
     Route: 048
     Dates: start: 20060205
  2. NEORAL [Suspect]
     Indication: NEPHROTIC SYNDROME
     Dosage: 160 MG, QD
     Route: 048
     Dates: start: 20060205, end: 20060217

REACTIONS (7)
  - CLONUS [None]
  - COMA [None]
  - CONVULSION [None]
  - DISORIENTATION [None]
  - HEADACHE [None]
  - HYPERTENSIVE ENCEPHALOPATHY [None]
  - VISUAL DISTURBANCE [None]
